FAERS Safety Report 8822666 (Version 2)
Quarter: 2013Q2

REPORT INFORMATION
  Report Type: Spontaneous
  Country: US (occurrence: US)
  Receive Date: 20121003
  Receipt Date: 20130517
  Transmission Date: 20140414
  Serious: Yes (Other)
  Sender: FDA-Public Use
  Company Number: US-PFIZER INC-2012244072

PATIENT
  Age: 42 Year
  Sex: Male

DRUGS (1)
  1. CHANTIX [Suspect]
     Dosage: 0.5MG AND1MG
     Dates: start: 20081006, end: 20081130

REACTIONS (4)
  - Suicidal ideation [Unknown]
  - Loss of consciousness [Unknown]
  - Depression [Unknown]
  - Anger [Unknown]
